FAERS Safety Report 26008866 (Version 1)
Quarter: 2025Q4

REPORT INFORMATION
  Report Type: Report from Study
  Country: KR (occurrence: KR)
  Receive Date: 20251106
  Receipt Date: 20251106
  Transmission Date: 20260118
  Serious: Yes (Other)
  Sender: JAZZ
  Company Number: KR-BR-LTD-OS-401-030-010

PATIENT
  Age: 70 Year
  Sex: Male
  Weight: 68 kg

DRUGS (14)
  1. LURBINECTEDIN [Suspect]
     Active Substance: LURBINECTEDIN
     Indication: Small cell lung cancer
     Dosage: 2 MILLIGRAM PER SQUARE METER
     Dates: start: 20240521, end: 20240723
  2. AMLODIPINE CAMSYLATE [Concomitant]
     Active Substance: AMLODIPINE CAMSYLATE
     Indication: Hypertension
     Dosage: UNK
  3. CHOLINE ALFOSCERATE [Concomitant]
     Active Substance: CHOLINE ALFOSCERATE
     Indication: Prophylaxis
     Dosage: UNK
  4. ESODUO [Concomitant]
     Indication: Prophylaxis
     Dosage: UNK
  5. ALGIN N [Concomitant]
     Indication: Prophylaxis
     Dosage: UNK
  6. YUHAN DEXAMETHASONE DISODIUM PHOSPHATE [Concomitant]
     Indication: Prophylaxis
     Dosage: 10 MILLIGRAM, QD
     Dates: start: 20240611
  7. YUHAN DEXAMETHASONE DISODIUM PHOSPHATE [Concomitant]
     Dosage: 10 MILLIGRAM, QD
     Dates: start: 20240702
  8. YUHAN DEXAMETHASONE DISODIUM PHOSPHATE [Concomitant]
     Dosage: 10 MILLIGRAM, QD
     Dates: start: 20240723
  9. ALOXI [Concomitant]
     Active Substance: PALONOSETRON HYDROCHLORIDE
     Indication: Prophylaxis
     Dosage: 5 MILLILITER, QD
     Dates: start: 20240611
  10. ALOXI [Concomitant]
     Active Substance: PALONOSETRON HYDROCHLORIDE
     Dosage: 5 MILLILITER, QD
     Dates: start: 20240702
  11. ALOXI [Concomitant]
     Active Substance: PALONOSETRON HYDROCHLORIDE
     Dosage: 5 MILLILITER, QD
     Dates: start: 20240723, end: 20240723
  12. METFORMIN HYDROCHLORIDE [Concomitant]
     Active Substance: METFORMIN HYDROCHLORIDE
     Indication: Diabetes mellitus
     Dosage: UNK
  13. DARBEPOETIN ALFA [Concomitant]
     Active Substance: DARBEPOETIN ALFA
     Indication: Product used for unknown indication
     Dosage: 5 MILLILITER, QD
     Dates: start: 20240723
  14. PELUBIPROFEN [Concomitant]
     Active Substance: PELUBIPROFEN
     Indication: Prophylaxis
     Dosage: 1 DF (DOSE FORM) BID

REACTIONS (3)
  - Hypokalaemia [Recovering/Resolving]
  - Constipation [Recovered/Resolved]
  - Swelling [Recovering/Resolving]

NARRATIVE: CASE EVENT DATE: 20240611
